FAERS Safety Report 15268256 (Version 1)
Quarter: 2018Q3

REPORT INFORMATION
  Report Type: Spontaneous
  Country: US (occurrence: US)
  Receive Date: 20180725
  Receipt Date: 20180725
  Transmission Date: 20181010
  Serious: Yes (Death)
  Sender: FDA-Public Use
  Company Number: None

PATIENT
  Age: 63 Year
  Sex: Male

DRUGS (8)
  1. SYNTHROID [Concomitant]
     Active Substance: LEVOTHYROXINE SODIUM
  2. TARCEVA [Suspect]
     Active Substance: ERLOTINIB HYDROCHLORIDE
     Indication: LUNG NEOPLASM MALIGNANT
     Route: 048
     Dates: start: 20140703, end: 20180106
  3. ZOCOR [Concomitant]
     Active Substance: SIMVASTATIN
  4. METOPROLOL TARTRATE. [Concomitant]
     Active Substance: METOPROLOL TARTRATE
  5. ALBUTEROL. [Concomitant]
     Active Substance: ALBUTEROL
  6. ASPIRIN. [Concomitant]
     Active Substance: ASPIRIN
  7. IRON [Concomitant]
     Active Substance: IRON
  8. VITAMIN D3 [Concomitant]
     Active Substance: CHOLECALCIFEROL

REACTIONS (1)
  - Death [None]

NARRATIVE: CASE EVENT DATE: 20180106
